FAERS Safety Report 22103397 (Version 2)
Quarter: 2023Q2

REPORT INFORMATION
  Report Type: Spontaneous
  Country: US (occurrence: US)
  Receive Date: 20230316
  Receipt Date: 20230614
  Transmission Date: 20230721
  Serious: Yes (Other)
  Sender: FDA-Public Use
  Company Number: US-BRISTOL-MYERS SQUIBB COMPANY-2023-038139

PATIENT
  Sex: Male

DRUGS (2)
  1. OPDIVO [Suspect]
     Active Substance: NIVOLUMAB
     Indication: Metastatic malignant melanoma
     Dosage: THE PATIENT RECEIVED2 DOSES IN TOTAL OF OPDIVO/YERVOY.
     Route: 042
  2. YERVOY [Suspect]
     Active Substance: IPILIMUMAB
     Indication: Metastatic malignant melanoma
     Dosage: THE PATIENT RECEIVED2 DOSES IN TOTAL OF OPDIVO/YERVOY.
     Route: 042

REACTIONS (1)
  - Colitis [Recovered/Resolved]
